FAERS Safety Report 15097457 (Version 1)
Quarter: 2018Q3

REPORT INFORMATION
  Report Type: Spontaneous
  Country: US (occurrence: US)
  Receive Date: 20180702
  Receipt Date: 20180702
  Transmission Date: 20181010
  Serious: Yes (Hospitalization, Other)
  Sender: FDA-Public Use
  Company Number: US-TARO-2018TAR00400

PATIENT
  Age: 85 Year
  Sex: Male
  Weight: 63.49 kg

DRUGS (5)
  1. OMEPRAZOLE. [Concomitant]
     Active Substance: OMEPRAZOLE
     Dosage: UNK, AS NEEDED
  2. PHENYTOIN ORAL SUSPENSION USP 125 MG/5ML [Suspect]
     Active Substance: PHENYTOIN
     Indication: SEIZURE
     Dosage: 125 MG, 2X/DAY
     Route: 048
     Dates: start: 201712, end: 201712
  3. METFORMIN [Concomitant]
     Active Substance: METFORMIN HYDROCHLORIDE
  4. PHENYTOIN ORAL SUSPENSION USP 125 MG/5ML [Suspect]
     Active Substance: PHENYTOIN
     Indication: EPILEPSY
     Dosage: 125 MG, 2X/DAY
     Dates: start: 201712, end: 2018
  5. CRESTOR [Concomitant]
     Active Substance: ROSUVASTATIN CALCIUM

REACTIONS (13)
  - Product taste abnormal [None]
  - Seizure [None]
  - Drug level increased [Not Recovered/Not Resolved]
  - Asthenia [Not Recovered/Not Resolved]
  - Somnolence [Not Recovered/Not Resolved]
  - Drug hypersensitivity [Recovered/Resolved]
  - Drug ineffective [None]
  - Dementia [Recovering/Resolving]
  - Gait disturbance [Not Recovered/Not Resolved]
  - Product substitution issue [Recovered/Resolved]
  - Feeling abnormal [Recovering/Resolving]
  - Insomnia [Not Recovered/Not Resolved]
  - Anticonvulsant drug level increased [None]

NARRATIVE: CASE EVENT DATE: 201712
